FAERS Safety Report 6399191-5 (Version None)
Quarter: 2009Q4

REPORT INFORMATION
  Report Type: 
  Country: None (occurrence: None)
  Receive Date: 20091008
  Receipt Date: 20090923
  Transmission Date: 20100525
  Serious: Yes (Other)
  Sender: FDA-Public Use
  Company Number: AUR-APL-2009-00706

PATIENT
  Age: 58 Year
  Sex: Male

DRUGS (6)
  1. ZIDOVUDINE [Suspect]
     Indication: HIV INFECTION
  2. LAMIVUDINE [Suspect]
     Indication: HIV INFECTION
  3. STAVUDINE [Suspect]
     Indication: HIV INFECTION
  4. DIDANOSINE [Suspect]
     Indication: HIV INFECTION
  5. INDINAVIR [Suspect]
     Indication: HIV INFECTION
  6. RITONAVIR [Suspect]
     Indication: HIV INFECTION

REACTIONS (7)
  - EYELID PTOSIS [None]
  - FATIGUE [None]
  - LIPODYSTROPHY ACQUIRED [None]
  - MIGRAINE [None]
  - MITOCHONDRIAL TOXICITY [None]
  - MYALGIA [None]
  - OPHTHALMOPLEGIA [None]
